FAERS Safety Report 16106368 (Version 1)
Quarter: 2019Q1

REPORT INFORMATION
  Report Type: Spontaneous
  Country: US (occurrence: US)
  Receive Date: 20190322
  Receipt Date: 20190322
  Transmission Date: 20190418
  Serious: Yes (Other)
  Sender: FDA-Public Use
  Company Number: US-PFIZER INC-2019111507

PATIENT
  Age: 65 Year
  Sex: Female
  Weight: 46.26 kg

DRUGS (2)
  1. XALKORI [Suspect]
     Active Substance: CRIZOTINIB
     Indication: INTRAOCULAR MELANOMA
     Dosage: 250 MG, 2X/DAY
     Route: 048
     Dates: start: 201803
  2. XALKORI [Suspect]
     Active Substance: CRIZOTINIB
     Dosage: 250 MG, 1X/DAY
     Route: 048
     Dates: end: 20190130

REACTIONS (19)
  - Mental impairment [Not Recovered/Not Resolved]
  - Feeling hot [Recovered/Resolved]
  - Electric shock [Recovered/Resolved]
  - Nausea [Not Recovered/Not Resolved]
  - Diarrhoea [Not Recovered/Not Resolved]
  - Malaise [Recovering/Resolving]
  - Abdominal pain [Recovering/Resolving]
  - Gastrooesophageal reflux disease [Not Recovered/Not Resolved]
  - Urinary incontinence [Recovering/Resolving]
  - Hypoaesthesia [Recovered/Resolved]
  - Decreased appetite [Not Recovered/Not Resolved]
  - Dysgeusia [Not Recovered/Not Resolved]
  - Dyspepsia [Recovering/Resolving]
  - Hot flush [Recovering/Resolving]
  - Product use in unapproved indication [Unknown]
  - Hepatic pain [Recovered/Resolved]
  - Vomiting [Recovering/Resolving]
  - Dizziness [Not Recovered/Not Resolved]
  - Fatigue [Not Recovered/Not Resolved]

NARRATIVE: CASE EVENT DATE: 2018
